FAERS Safety Report 21530342 (Version 1)
Quarter: 2022Q4

REPORT INFORMATION
  Report Type: Spontaneous
  Country: US (occurrence: US)
  Receive Date: 20221031
  Receipt Date: 20221031
  Transmission Date: 20230112
  Serious: Yes (Other)
  Sender: FDA-Public Use
  Company Number: US-PFIZER INC-PV202200091219

PATIENT
  Age: 83 Year
  Sex: Female

DRUGS (2)
  1. BRAFTOVI [Suspect]
     Active Substance: ENCORAFENIB
     Indication: Metastasis
     Dosage: 450 MG
  2. MEKTOVI [Suspect]
     Active Substance: BINIMETINIB
     Indication: Metastasis
     Dosage: 45 MG

REACTIONS (1)
  - Sudden hearing loss [Recovered/Resolved]
